FAERS Safety Report 8311434-7 (Version None)
Quarter: 2012Q2

REPORT INFORMATION
  Report Type: 
  Country: None (occurrence: None)
  Receive Date: 20120423
  Receipt Date: 20120409
  Transmission Date: 20120825
  Serious: Yes (Life-Threatening, Hospitalization)
  Sender: FDA-Public Use
  Company Number: DSA_55187_2012

PATIENT
  Sex: Female
  Weight: 57.1532 kg

DRUGS (3)
  1. XENAZINE [Suspect]
     Indication: HUNTINGTON'S DISEASE
     Dosage: SEE IMAGE
     Route: 048
     Dates: start: 20120214, end: 20120220
  2. XENAZINE [Suspect]
     Indication: HUNTINGTON'S DISEASE
     Dosage: SEE IMAGE
     Route: 048
     Dates: start: 20120207, end: 20120213
  3. XENAZINE [Suspect]
     Indication: HUNTINGTON'S DISEASE
     Dosage: SEE IMAGE
     Route: 048
     Dates: start: 20120221

REACTIONS (13)
  - SUBDURAL HAEMORRHAGE [None]
  - PAIN IN JAW [None]
  - COORDINATION ABNORMAL [None]
  - MOOD SWINGS [None]
  - DRUG DOSE OMISSION [None]
  - DEPRESSION [None]
  - FALL [None]
  - MEMORY IMPAIRMENT [None]
  - BRUXISM [None]
  - SPEECH DISORDER [None]
  - INSOMNIA [None]
  - DYSPHAGIA [None]
  - AFFECT LABILITY [None]
